APPROVED DRUG PRODUCT: DECASPRAY
Active Ingredient: DEXAMETHASONE
Strength: 0.04% **Federal Register determination that product was not discontinued or withdrawn for safety or effectiveness reasons**
Dosage Form/Route: AEROSOL;TOPICAL
Application: N012731 | Product #002
Applicant: MERCK AND CO INC
Approved: Approved Prior to Jan 1, 1982 | RLD: Yes | RS: No | Type: DISCN